FAERS Safety Report 6124263-X (Version None)
Quarter: 2009Q1

REPORT INFORMATION
  Report Type: 
  Country: None (occurrence: None)
  Receive Date: 20090317
  Receipt Date: 20090305
  Transmission Date: 20090719
  Serious: Yes (Other)
  Sender: FDA-Public Use
  Company Number: 231920K09USA

PATIENT
  Age: 28 Year
  Sex: Female
  Weight: 77 kg

DRUGS (4)
  1. REBIF [Suspect]
     Indication: MULTIPLE SCLEROSIS
     Dosage: 44 MCG, 3 IN 1 WEEKS, SUBCUTANEOUS
     Route: 058
     Dates: start: 20080808, end: 20090209
  2. PROZAC [Concomitant]
  3. PERCOCET [Concomitant]
  4. DEPO PROVERA (MEDROPROGESTERONE) [Concomitant]

REACTIONS (2)
  - HEPATITIS ACUTE [None]
  - HEPATOMEGALY [None]
